FAERS Safety Report 9399095 (Version 1)
Quarter: 2013Q3

REPORT INFORMATION
  Report Type: Report from Study
  Country: US (occurrence: US)
  Receive Date: 20130715
  Receipt Date: 20130715
  Transmission Date: 20140515
  Serious: Yes (Other)
  Sender: FDA-Public Use
  Company Number: US-ROCHE-1206180

PATIENT
  Sex: 0

DRUGS (3)
  1. CAPECITABINE [Suspect]
     Indication: HEPATOCELLULAR CARCINOMA
     Dosage: 850 MG/M, SUP 2 BID X 7 Q 14,ADJUSTED AS TOLERATED TO 650MG/M SUP 2 BID OR TO 500 MG/M SUP 2 BID X 7
     Route: 065
  2. CAPECITABINE [Suspect]
     Route: 065
  3. SORAFENIB [Suspect]
     Indication: HEPATOCELLULAR CARCINOMA
     Route: 065

REACTIONS (16)
  - Skin ulcer [Unknown]
  - Palmar-plantar erythrodysaesthesia syndrome [Unknown]
  - Fatigue [Unknown]
  - Thrombocytopenia [Unknown]
  - Neutropenia [Unknown]
  - Anaemia [Unknown]
  - Hypophosphataemia [Unknown]
  - Hypomagnesaemia [Unknown]
  - Hypocalcaemia [Unknown]
  - Hyponatraemia [Unknown]
  - Hyperbilirubinaemia [Unknown]
  - Aspartate aminotransferase increased [Unknown]
  - Mucosal inflammation [Unknown]
  - Alopecia [Unknown]
  - Rash [Unknown]
  - Deep vein thrombosis [Unknown]
